FAERS Safety Report 9913524 (Version 1)
Quarter: 2014Q1

REPORT INFORMATION
  Report Type: Spontaneous
  Country: US (occurrence: None)
  Receive Date: 20140219
  Receipt Date: 20140219
  Transmission Date: 20141002
  Serious: No
  Sender: FDA-Public Use
  Company Number: None

PATIENT
  Sex: 0

DRUGS (1)
  1. CHILDRENS TYLENOL [Suspect]
     Dates: start: 20140111, end: 20140111

REACTIONS (1)
  - Convulsion [None]
